FAERS Safety Report 5287131-1 (Version None)
Quarter: 2007Q1

REPORT INFORMATION
  Report Type: 
  Country: None (occurrence: None)
  Receive Date: 20070116
  Receipt Date: 20060915
  Transmission Date: 20070707
  Serious: No
  Sender: FDA-Public Use
  Company Number: 2006SP003328

PATIENT
  Age: 49 Year
  Sex: Male

DRUGS (1)
  1. LUNESTA [Suspect]
     Indication: SLEEP DISORDER
     Dosage: 3 MG; ORAL
     Route: 048

REACTIONS (1)
  - INSOMNIA [None]
